FAERS Safety Report 20742324 (Version 2)
Quarter: 2023Q1

REPORT INFORMATION
  Report Type: Spontaneous
  Country: GB (occurrence: GB)
  Receive Date: 20220424
  Receipt Date: 20230127
  Transmission Date: 20230418
  Serious: Yes (Hospitalization, Other)
  Sender: FDA-Public Use
  Company Number: None

PATIENT
  Age: 20 Year
  Sex: Male
  Weight: 72.1 kg

DRUGS (35)
  1. CYCLOPHOSPHAMIDE [Suspect]
     Active Substance: CYCLOPHOSPHAMIDE
     Indication: Refractory cancer
     Dosage: 250 MG/M2, 21D, POWDER FOR SOLUTION FOR INJECTION (MAXIMUM 5 DAYS EVERY 21 DAYS) 21 SEPARATED DOSES
     Dates: start: 20220221
  2. CETIRIZINE HYDROCHLORIDE [Suspect]
     Active Substance: CETIRIZINE HYDROCHLORIDE
     Indication: Product used for unknown indication
     Dosage: UNK
     Dates: start: 20220301
  3. DOCUSATE SODIUM [Suspect]
     Active Substance: DOCUSATE SODIUM
     Indication: Product used for unknown indication
     Dosage: UNK
     Dates: start: 20220301, end: 202203
  4. INSTILLAGEL [Suspect]
     Active Substance: CHLORHEXIDINE GLUCONATE\LIDOCAINE HYDROCHLORIDE
     Indication: Product used for unknown indication
     Dosage: UNK
  5. MORPHINE SULFATE [Suspect]
     Active Substance: MORPHINE SULFATE
     Indication: Product used for unknown indication
     Dosage: UNK
  6. TOPOTECAN HYDROCHLORIDE [Suspect]
     Active Substance: TOPOTECAN HYDROCHLORIDE
     Indication: Refractory cancer
     Dosage: 0.75 MG/M2, 21D (MAXIMUM 5 DAYS EVERY 21 DAYS)
     Dates: start: 20220221
  7. VENETOCLAX [Suspect]
     Active Substance: VENETOCLAX
     Indication: Refractory cancer
     Dosage: 800 MG, QD
     Dates: start: 20220218
  8. HYDROCORTISONE ACETATE\LIDOCAINE HYDROCHLORIDE [Suspect]
     Active Substance: HYDROCORTISONE ACETATE\LIDOCAINE HYDROCHLORIDE
     Indication: Product used for unknown indication
     Dosage: UNK
  9. COTRIMOXAZOLE [Concomitant]
     Active Substance: SULFAMETHOXAZOLE\TRIMETHOPRIM
     Indication: Pneumocystis jirovecii pneumonia
     Dosage: 960 MG, BID (MONDAY, WEDNESDAY AND FRIDAY, 2 IN 1 DAY) 2 SEPARATED DOSES
     Dates: start: 20220218
  10. LEVOTHYROXINE [Concomitant]
     Active Substance: LEVOTHYROXINE
     Indication: Hypothyroidism
     Dosage: 75 ?G, QD
     Dates: start: 20200707
  11. LIPEGFILGRASTIM [Concomitant]
     Active Substance: LIPEGFILGRASTIM
     Indication: Prophylaxis
     Dosage: 6 MG, QD
     Dates: start: 20220227, end: 20220227
  12. ONDANSETRON [Concomitant]
     Active Substance: ONDANSETRON
     Indication: Prophylaxis of nausea and vomiting
     Dosage: 24 MG, TID (8 MG, 3 IN ONE DAY) 3 SEPARATED DOSES
     Dates: start: 20220218
  13. ACETAMINOPHEN [Concomitant]
     Active Substance: ACETAMINOPHEN
     Indication: Product used for unknown indication
  14. PIPERACILLIN SODIUM\TAZOBACTAM SODIUM [Concomitant]
     Active Substance: PIPERACILLIN SODIUM\TAZOBACTAM SODIUM
     Indication: Product used for unknown indication
  15. DOXORUBICIN HYDROCHLORIDE [Suspect]
     Active Substance: DOXORUBICIN HYDROCHLORIDE
     Indication: Neoplasm
     Dosage: UNK
     Dates: start: 20200430, end: 20200818
  16. IFOSFAMIDE [Suspect]
     Active Substance: IFOSFAMIDE
     Indication: Neoplasm
     Dosage: UNK
     Dates: start: 20170519, end: 20171118
  17. MESNA [Suspect]
     Active Substance: MESNA
     Indication: Neoplasm
     Dosage: UNK
     Dates: start: 20170519, end: 20171118
  18. AMOXICILLIN\CLAVULANIC ACID [Concomitant]
     Active Substance: AMOXICILLIN\CLAVULANIC ACID
     Indication: Adverse event
     Dosage: AN UNSPECIFIED DOSE AND FREQUENCY; ;
     Dates: start: 20220331
  19. CLONIDINE [Concomitant]
     Active Substance: CLONIDINE
     Indication: Proctalgia
  20. DOCUSATE SODIUM [Suspect]
     Active Substance: DOCUSATE SODIUM
     Indication: Product used for unknown indication
     Dates: start: 20220301
  21. FENTANYL [Concomitant]
     Active Substance: FENTANYL
     Indication: Proctalgia
  22. HYDROCORTISONE ACETATE [Suspect]
     Active Substance: HYDROCORTISONE ACETATE
     Indication: Adverse event
  23. KETAMINE [Concomitant]
     Active Substance: KETAMINE
     Indication: Proctalgia
  24. LIDOCAINE [Suspect]
     Active Substance: LIDOCAINE
     Indication: Adverse event
  25. LIDOCAINE HYDROCHLORIDE [Concomitant]
     Active Substance: LIDOCAINE HYDROCHLORIDE
     Indication: Product used for unknown indication
  26. POLYETHYLENE GLYCOLS [Concomitant]
     Active Substance: POLYETHYLENE GLYCOLS
     Indication: Proctalgia
  27. MEROPENEM [Concomitant]
     Active Substance: MEROPENEM
     Indication: Proctalgia
  28. MORPHINE SULFATE [Suspect]
     Active Substance: MORPHINE SULFATE
     Indication: Product used for unknown indication
  29. SULFAMETHOXAZOLE [Concomitant]
     Active Substance: SULFAMETHOXAZOLE
     Indication: Product used for unknown indication
  30. TEICOPLANIN [Concomitant]
     Active Substance: TEICOPLANIN
     Indication: Proctalgia
  31. TOPOTECAN HYDROCHLORIDE [Suspect]
     Active Substance: TOPOTECAN HYDROCHLORIDE
     Indication: Refractory cancer
     Dosage: MAXIMUM 5 DAYS
     Dates: start: 20220221
  32. TRIMETHOPRIM [Concomitant]
     Active Substance: TRIMETHOPRIM
     Indication: Product used for unknown indication
  33. ZINC OXIDE [Concomitant]
     Active Substance: ZINC OXIDE
     Indication: Product used for unknown indication
  34. ZINC SULFATE [Concomitant]
     Active Substance: ZINC SULFATE
     Indication: Haemorrhoids
     Dosage: UNKNOWN; ;
     Dates: start: 20220304
  35. CETIRIZINE HYDROCHLORIDE [Suspect]
     Active Substance: CETIRIZINE HYDROCHLORIDE
     Indication: Product used for unknown indication
     Dosage: ZIRTEK ALLERGY; ;
     Dates: start: 20220301

REACTIONS (15)
  - Febrile neutropenia [Recovered/Resolved]
  - Back pain [Recovered/Resolved]
  - Malaise [Unknown]
  - Haemorrhoids [Unknown]
  - Diarrhoea [Recovering/Resolving]
  - Pain [Unknown]
  - Accident [Unknown]
  - Vomiting [Unknown]
  - Body temperature increased [Unknown]
  - Proctalgia [Recovered/Resolved]
  - Crohn^s disease [Unknown]
  - Anal inflammation [Unknown]
  - Neutropenia [Unknown]
  - Chills [Unknown]
  - Pyrexia [Unknown]

NARRATIVE: CASE EVENT DATE: 20220301
